FAERS Safety Report 21314636 (Version 1)
Quarter: 2022Q3

REPORT INFORMATION
  Report Type: Spontaneous
  Country: US (occurrence: None)
  Receive Date: 20220909
  Receipt Date: 20220909
  Transmission Date: 20221027
  Serious: No
  Sender: FDA-Public Use
  Company Number: US-ARIS GLOBAL-202110-1883

PATIENT
  Sex: Female

DRUGS (16)
  1. OXERVATE [Suspect]
     Active Substance: CENEGERMIN-BKBJ
     Indication: Neurotrophic keratopathy
     Route: 047
     Dates: start: 20210930
  2. ASPIRIN [Concomitant]
     Active Substance: ASPIRIN
  3. MAGNESIUM [Concomitant]
     Active Substance: MAGNESIUM
  4. HEALTHY EYES [Concomitant]
     Dosage: 1000-60-2
  5. MULTIVITAMIN 50 PLUS [Concomitant]
  6. GABAPENTIN [Concomitant]
     Active Substance: GABAPENTIN
  7. ACETAMINOPHEN\HYDROCODONE [Concomitant]
     Active Substance: ACETAMINOPHEN\HYDROCODONE
  8. CELECOXIB [Concomitant]
     Active Substance: CELECOXIB
  9. OMEPRAZOLE [Concomitant]
     Active Substance: OMEPRAZOLE
  10. TRAZODONE HCL [Concomitant]
     Active Substance: TRAZODONE HYDROCHLORIDE
  11. SERTRALINE HYDROCHLORIDE [Concomitant]
     Active Substance: SERTRALINE HYDROCHLORIDE
  12. VITAMIN D2 [Concomitant]
     Active Substance: ERGOCALCIFEROL
  13. DICLOFENAC [Concomitant]
     Active Substance: DICLOFENAC
  14. OLMESARTAN-AMLODIPINE-HCTZ [Concomitant]
  15. BYSTOLIC [Concomitant]
     Active Substance: NEBIVOLOL HYDROCHLORIDE
  16. ATORVASTATIN CALCIUM [Concomitant]
     Active Substance: ATORVASTATIN CALCIUM

REACTIONS (2)
  - Eye pain [Unknown]
  - Ocular discomfort [Unknown]
